FAERS Safety Report 4759104-6 (Version None)
Quarter: 2005Q3

REPORT INFORMATION
  Report Type: 
  Country: None (occurrence: None)
  Receive Date: 20050826
  Receipt Date: 20050815
  Transmission Date: 20060218
  Serious: Yes (Other)
  Sender: FDA-Public Use
  Company Number: US-2005-016643

PATIENT
  Age: 46 Year
  Sex: Female
  Weight: 94.3 kg

DRUGS (1)
  1. BETASERON [Suspect]
     Indication: RELAPSING-REMITTING MULTIPLE SCLEROSIS
     Dosage: 8 MIU, EVERY 2D, SUBCUTANEOUS
     Route: 058
     Dates: start: 20020130

REACTIONS (5)
  - DYSPHAGIA [None]
  - HYPERTHYROIDISM [None]
  - INTERVERTEBRAL DISC PROTRUSION [None]
  - TEMPERATURE INTOLERANCE [None]
  - THYROID NEOPLASM [None]
